FAERS Safety Report 9246949 (Version 2)
Quarter: 2013Q2

REPORT INFORMATION
  Report Type: Spontaneous
  Country: CZ (occurrence: CZ)
  Receive Date: 20130422
  Receipt Date: 20130524
  Transmission Date: 20140414
  Serious: Yes (Hospitalization, Other)
  Sender: FDA-Public Use
  Company Number: PHHY2013CZ035920

PATIENT
  Age: 66 Year
  Sex: Female
  Weight: 81 kg

DRUGS (12)
  1. METOPROLOL [Suspect]
     Dosage: 200 MG, PER DAY
  2. METOPROLOL [Interacting]
     Dosage: 100 MG, DAILY
  3. METOPROLOL [Interacting]
     Dosage: 12.5 MG, DAILY
  4. METOPROLOL [Interacting]
     Dosage: 100 MG, DAILY
  5. PROPAFENONE [Interacting]
     Indication: ARRHYTHMIA PROPHYLAXIS
     Dosage: 600 MG, DAILY
  6. LOSARTAN [Concomitant]
     Dosage: 100 MG, PER DAY
  7. RILMENIDINE [Concomitant]
     Dosage: 1 MG, PER DAY
  8. FUROSEMIDE [Concomitant]
     Dosage: 60 MG, PER DAY
  9. CAPTOPRIL [Concomitant]
  10. ACETYLSALICYLIC ACID [Concomitant]
     Dosage: 100 MG, PER DAY
  11. ISOSORBIDE MONONITRATE [Concomitant]
     Dosage: 20 MG, PER DAY
  12. AMLODIPINE [Concomitant]
     Dosage: 5 MG, PER DAY

REACTIONS (12)
  - Orthopnoea [Unknown]
  - Atrial fibrillation [Unknown]
  - Pain [Unknown]
  - Dyspnoea [Unknown]
  - Oedema peripheral [Unknown]
  - Blood pressure increased [Unknown]
  - Cardiac failure [Unknown]
  - Chest pain [Unknown]
  - Drug interaction [Unknown]
  - Drug level increased [Unknown]
  - Fatigue [Recovered/Resolved]
  - Dyspnoea exertional [Recovered/Resolved]
